FAERS Safety Report 9271921 (Version 4)
Quarter: 2013Q2

REPORT INFORMATION
  Report Type: Spontaneous
  Country: US (occurrence: US)
  Receive Date: 20130506
  Receipt Date: 20130627
  Transmission Date: 20140414
  Serious: No
  Sender: FDA-Public Use
  Company Number: US-009507513-1304USA015889

PATIENT
  Age: 53 Year
  Sex: Male

DRUGS (8)
  1. VICTRELIS [Suspect]
     Indication: HEPATITIS C
     Dosage: UNK
     Route: 048
     Dates: start: 20130308, end: 20130524
  2. VICTRELIS [Suspect]
     Dosage: UNK
     Dates: start: 20130612
  3. PEG-INTRON [Suspect]
     Indication: HEPATITIS C
     Dosage: REDIPEN
     Dates: start: 20090213, end: 20090513
  4. PEG-INTRON [Suspect]
     Dosage: REDIPEN
     Dates: start: 20130211, end: 20130524
  5. PEG-INTRON [Suspect]
     Dosage: UNK
     Dates: start: 20130612
  6. REBETOL [Suspect]
     Indication: HEPATITIS C
     Dosage: UNK
     Route: 048
     Dates: start: 20090213, end: 20090513
  7. REBETOL [Suspect]
     Dosage: UNK
     Route: 048
     Dates: start: 20130211, end: 20130524
  8. REBETOL [Suspect]
     Dosage: UNK
     Dates: start: 20130524

REACTIONS (14)
  - Respiratory disorder [Unknown]
  - Chest pain [Unknown]
  - Blood disorder [Unknown]
  - Cough [Unknown]
  - Dyspnoea [Unknown]
  - Pyrexia [Unknown]
  - Cough [Unknown]
  - Fatigue [Unknown]
  - Headache [Unknown]
  - Insomnia [Unknown]
  - Bronchitis [Unknown]
  - Cough [Unknown]
  - Inappropriate schedule of drug administration [Unknown]
  - Drug dose omission [Unknown]
